FAERS Safety Report 4472903-3 (Version None)
Quarter: 2004Q4

REPORT INFORMATION
  Report Type: 
  Country: None (occurrence: None)
  Receive Date: 20041012
  Receipt Date: 20041012
  Transmission Date: 20050328
  Serious: Yes (Hospitalization)
  Sender: FDA-Public Use
  Company Number: None

PATIENT
  Age: 67 Year
  Sex: Male
  Weight: 83.8 kg

DRUGS (3)
  1. CLOPIDOGREL [Suspect]
     Indication: DEEP VENOUS THROMBOSIS PROPHYLAXIS
     Dosage: 75MG,75MG QD,ORAL
     Route: 048
     Dates: start: 20040812, end: 20040819
  2. ASPIRIN [Concomitant]
  3. PREDNISONE TAB [Concomitant]

REACTIONS (1)
  - GASTROINTESTINAL HAEMORRHAGE [None]
